FAERS Safety Report 6624746-X (Version None)
Quarter: 2010Q1

REPORT INFORMATION
  Report Type: 
  Country: None (occurrence: None)
  Receive Date: 20100310
  Receipt Date: 20100226
  Transmission Date: 20100710
  Serious: Yes (Other)
  Sender: FDA-Public Use
  Company Number: JP-PFIZER INC-2010027120

PATIENT

DRUGS (1)
  1. DALACIN [Suspect]
     Dosage: 600 MG, 2X/DAY
     Route: 042

REACTIONS (1)
  - RENAL IMPAIRMENT [None]
